FAERS Safety Report 15925557 (Version 2)
Quarter: 2019Q1

REPORT INFORMATION
  Report Type: Spontaneous
  Country: US (occurrence: US)
  Receive Date: 20190206
  Receipt Date: 20190208
  Transmission Date: 20190417
  Serious: No
  Sender: FDA-Public Use
  Company Number: US-PFIZER INC-2019043756

PATIENT
  Age: 45 Year
  Sex: Male
  Weight: 190.5 kg

DRUGS (2)
  1. SERTRALINE HCL [Suspect]
     Active Substance: SERTRALINE HYDROCHLORIDE
     Indication: ANXIETY
  2. SERTRALINE HCL [Suspect]
     Active Substance: SERTRALINE HYDROCHLORIDE
     Indication: DEPRESSION
     Dosage: 100 MG, 1X/DAY
     Route: 048

REACTIONS (8)
  - Paraesthesia [Unknown]
  - Weight fluctuation [Unknown]
  - Nightmare [Not Recovered/Not Resolved]
  - Drug ineffective [Unknown]
  - Hypoaesthesia oral [Unknown]
  - Memory impairment [Not Recovered/Not Resolved]
  - Crying [Unknown]
  - Hallucination [Not Recovered/Not Resolved]
